FAERS Safety Report 24617068 (Version 1)
Quarter: 2024Q4

REPORT INFORMATION
  Report Type: Report from Study
  Country: CN (occurrence: CN)
  Receive Date: 20241114
  Receipt Date: 20241114
  Transmission Date: 20250115
  Serious: Yes (Life-Threatening)
  Sender: ROCHE
  Company Number: CN-ROCHE-10000129348

PATIENT
  Sex: Male
  Weight: 75 kg

DRUGS (1)
  1. TECENTRIQ [Suspect]
     Active Substance: ATEZOLIZUMAB
     Indication: Lung carcinoma cell type unspecified stage IV
     Route: 042
     Dates: start: 20230529, end: 20240109

REACTIONS (3)
  - Myocarditis [Recovering/Resolving]
  - Rhinorrhoea [Unknown]
  - Mydriasis [Unknown]

NARRATIVE: CASE EVENT DATE: 20240101
